FAERS Safety Report 7593579-2 (Version None)
Quarter: 2011Q3

REPORT INFORMATION
  Report Type: 
  Country: None (occurrence: None)
  Receive Date: 20110706
  Receipt Date: 20110617
  Transmission Date: 20111222
  Serious: No
  Sender: FDA-Public Use
  Company Number: US-B.I. PHARMACEUTICALS,INC./RIDGEFIELD-2011-BP-15811BP

PATIENT
  Age: 73 Year
  Sex: Female

DRUGS (1)
  1. ZANTAC 150 [Suspect]
     Indication: HIATUS HERNIA
     Dosage: 300 MG
     Route: 048
     Dates: start: 20100101, end: 20101201

REACTIONS (1)
  - DRUG INEFFECTIVE [None]
